FAERS Safety Report 24227323 (Version 1)
Quarter: 2024Q3

REPORT INFORMATION
  Report Type: Spontaneous
  Country: US (occurrence: None)
  Receive Date: 20240816
  Receipt Date: 20240816
  Transmission Date: 20241017
  Serious: Yes (Other)
  Sender: Public
  Company Number: None

PATIENT
  Age: 52 Year
  Sex: Female

DRUGS (1)
  1. XDEMVY [Suspect]
     Active Substance: LOTILANER

REACTIONS (5)
  - Hordeolum [None]
  - Eye swelling [None]
  - Lacrimation increased [None]
  - Sleep disorder [None]
  - Eye irritation [None]

NARRATIVE: CASE EVENT DATE: 20240807
